FAERS Safety Report 4284357-0 (Version None)
Quarter: 2004Q1

REPORT INFORMATION
  Report Type: 
  Country: None (occurrence: None)
  Receive Date: 20040130
  Receipt Date: 20040127
  Transmission Date: 20041129
  Serious: Yes (Death)
  Sender: FDA-Public Use
  Company Number: US-JNJFOC-20031202663

PATIENT
  Age: 71 Year
  Sex: Male

DRUGS (1)
  1. DURAGESIC [Suspect]
     Indication: CANCER PAIN
     Dosage: 25 UG/HR, 1 IN 72 HOUR, TRANSDERMAL
     Route: 062
     Dates: start: 20030926, end: 20031126

REACTIONS (3)
  - DRUG INEFFECTIVE [None]
  - METASTASES TO SPINE [None]
  - REFUSAL OF TREATMENT BY PATIENT [None]
